FAERS Safety Report 20738413 (Version 2)
Quarter: 2022Q2

REPORT INFORMATION
  Report Type: Other
  Country: HK (occurrence: None)
  Receive Date: 20220422
  Receipt Date: 20220513
  Transmission Date: 20220721
  Serious: Yes (Other)
  Sender: FDA-Public Use
  Company Number: HK-ROCHE-3079805

PATIENT
  Age: 47 Year
  Sex: Female

DRUGS (1)
  1. ROZLYTREK [Suspect]
     Active Substance: ENTRECTINIB
     Indication: Non-small cell lung cancer
     Route: 065

REACTIONS (2)
  - Renal impairment [Recovered/Resolved]
  - Peripheral swelling [Not Recovered/Not Resolved]
